FAERS Safety Report 5961846-1 (Version None)
Quarter: 2008Q4

REPORT INFORMATION
  Report Type: 
  Country: None (occurrence: None)
  Receive Date: 20081121
  Receipt Date: 20080310
  Transmission Date: 20090506
  Serious: Yes (Hospitalization)
  Sender: FDA-Public Use
  Company Number: US-BRISTOL-MYERS SQUIBB COMPANY-14108492

PATIENT
  Age: 71 Year
  Sex: Female
  Weight: 86 kg

DRUGS (6)
  1. AVALIDE [Suspect]
     Indication: BLOOD PRESSURE INCREASED
     Dosage: 1 DOSAGE FORM = 150MG/12.5MG
     Dates: start: 20030101
  2. LASIX [Concomitant]
  3. PLAVIX [Concomitant]
  4. ASPIRIN [Concomitant]
  5. VITAMIN E [Concomitant]
  6. SYNTHROID [Concomitant]

REACTIONS (3)
  - BLOOD SODIUM DECREASED [None]
  - DYSPNOEA [None]
  - HYPOTENSION [None]
